FAERS Safety Report 5362543-6 (Version None)
Quarter: 2007Q2

REPORT INFORMATION
  Report Type: 
  Country: None (occurrence: None)
  Receive Date: 20070619
  Receipt Date: 20070607
  Transmission Date: 20071010
  Serious: Yes (Other)
  Sender: FDA-Public Use
  Company Number: US-AVENTIS-200714217US

PATIENT
  Age: 21 Year
  Sex: Male

DRUGS (8)
  1. LANTUS [Suspect]
     Dosage: DOSE: 50 U AND BACKING DOWN
     Dates: start: 20070201
  2. LANTUS [Suspect]
     Dosage: DOSE: 50 U AND BACKING DOWN
     Dates: start: 20070201
  3. NOVOLOG [Suspect]
     Dosage: DOSE: UNK
     Dates: start: 20070201, end: 20070201
  4. HUMALOG [Suspect]
     Dosage: DOSE: UNK
     Dates: start: 20070201, end: 20070201
  5. AMBIEN [Concomitant]
     Dosage: DOSE: UNK
  6. CLONIDINE [Concomitant]
     Dosage: DOSE: UNK
  7. PROZAC [Concomitant]
     Dosage: DOSE: UNK
  8. DEPAKENE                           /00228501/ [Concomitant]
     Dosage: DOSE: UNK

REACTIONS (9)
  - AGGRESSION [None]
  - AGITATION [None]
  - CONDITION AGGRAVATED [None]
  - HALLUCINATION, VISUAL [None]
  - HYPERAESTHESIA [None]
  - NEURALGIA [None]
  - OBSESSIVE-COMPULSIVE DISORDER [None]
  - PSYCHOMOTOR HYPERACTIVITY [None]
  - TIC [None]
